FAERS Safety Report 9216269 (Version 1)
Quarter: 2013Q2

REPORT INFORMATION
  Report Type: Spontaneous
  Country: US (occurrence: US)
  Receive Date: 20130408
  Receipt Date: 20130408
  Transmission Date: 20140414
  Serious: Yes (Hospitalization)
  Sender: FDA-Public Use
  Company Number: US-BAYER-2013-041425

PATIENT
  Age: 35 Year
  Sex: Female

DRUGS (3)
  1. YAZ [Suspect]
     Indication: ACNE
     Dosage: UNK
  2. SUDAFED [Concomitant]
     Dosage: UNK
  3. MUCINEX [Concomitant]
     Dosage: UNK

REACTIONS (1)
  - Pulmonary embolism [None]
